FAERS Safety Report 17082268 (Version 3)
Quarter: 2020Q1

REPORT INFORMATION
  Report Type: Report from Study
  Country: US (occurrence: US)
  Receive Date: 20191127
  Receipt Date: 20200109
  Transmission Date: 20200409
  Serious: Yes (Hospitalization, Other)
  Sender: FDA-Public Use
  Company Number: NVSC2019US046058

PATIENT
  Sex: Female

DRUGS (2)
  1. AMLODIPINE [Concomitant]
     Active Substance: AMLODIPINE BESYLATE
     Indication: PRODUCT USED FOR UNKNOWN INDICATION
     Dosage: UNK
     Route: 065
  2. GILENYA [Suspect]
     Active Substance: FINGOLIMOD HYDROCHLORIDE
     Indication: MULTIPLE SCLEROSIS
     Dosage: 0.5 MG, QD
     Route: 048

REACTIONS (10)
  - Feeling abnormal [Unknown]
  - Thrombosis [Unknown]
  - Loss of control of legs [Unknown]
  - Fatigue [Unknown]
  - Tremor [Unknown]
  - Bladder disorder [Unknown]
  - Sepsis [Unknown]
  - Aneurysm [Unknown]
  - Asthenia [Unknown]
  - Urinary tract infection [Unknown]
